FAERS Safety Report 5294987-5 (Version None)
Quarter: 2007Q2

REPORT INFORMATION
  Report Type: 
  Country: None (occurrence: None)
  Receive Date: 20070412
  Receipt Date: 20070402
  Transmission Date: 20071010
  Serious: Yes (Hospitalization)
  Sender: FDA-Public Use
  Company Number: AT-ABBOTT-07P-009-0363710-00

PATIENT
  Age: 81 Year
  Sex: Female

DRUGS (8)
  1. HUMIRA [Suspect]
     Indication: RHEUMATOID ARTHRITIS
     Route: 058
     Dates: start: 20070112, end: 20070112
  2. METHOTREXATE SODIUM [Concomitant]
     Indication: RHEUMATOID ARTHRITIS
     Route: 058
  3. LORNOXICAM [Concomitant]
     Indication: RHEUMATOID ARTHRITIS
     Route: 048
  4. APREDNISOLON [Concomitant]
     Indication: RHEUMATOID ARTHRITIS
     Route: 048
  5. FOLIC ACID [Concomitant]
     Indication: RHEUMATOID ARTHRITIS
     Route: 048
  6. KOMBIKALZ [Concomitant]
     Indication: OSTEOPENIA
     Route: 048
  7. AKTIFERRIN [Concomitant]
     Indication: ANAEMIA
     Route: 048
  8. TIZANIDINE HCL [Concomitant]
     Indication: MUSCLE SPASMS
     Route: 048

REACTIONS (4)
  - ARTHRALGIA [None]
  - CHILLS [None]
  - HYPERSENSITIVITY [None]
  - PYREXIA [None]
